FAERS Safety Report 24758513 (Version 1)
Quarter: 2024Q4

REPORT INFORMATION
  Report Type: Spontaneous
  Country: US (occurrence: US)
  Receive Date: 20241220
  Receipt Date: 20241220
  Transmission Date: 20250114
  Serious: No
  Sender: REVANCE THERAPEUTICS
  Company Number: US-REVANCE THERAPEUTICS INC.-US-REV-2024-000696

PATIENT

DRUGS (1)
  1. DAXIBOTULINUMTOXIN A-LANM [Suspect]
     Active Substance: DAXIBOTULINUMTOXIN A-LANM
     Indication: Skin wrinkling
     Dosage: 96 U: FRONTALIS (40 UNITS), GLABELLA (24 UNITS ) AND CROW^S FEET (32 UNITS)
     Route: 065
     Dates: start: 20241003

REACTIONS (5)
  - Injection site pain [Recovered/Resolved]
  - No adverse event [Unknown]
  - Drug ineffective for unapproved indication [Unknown]
  - Underdose [Unknown]
  - Off label use [Unknown]

NARRATIVE: CASE EVENT DATE: 20241003
